FAERS Safety Report 9408360 (Version 1)
Quarter: 2013Q3

REPORT INFORMATION
  Report Type: Spontaneous
  Country: GB (occurrence: None)
  Receive Date: 20130716
  Receipt Date: 20130716
  Transmission Date: 20140515
  Serious: Yes (Other)
  Sender: FDA-Public Use
  Company Number: GER/UKI/13/0031427

PATIENT
  Age: 61 Year
  Sex: Female
  Weight: 166 kg

DRUGS (10)
  1. SERTRALINE (SERTRALINE) [Suspect]
     Indication: DEPRESSION
     Route: 048
  2. MONTELUKAST [Concomitant]
  3. OMEPRAZOLE (OMEPRAZOLE) [Concomitant]
  4. PROCHLORPERAZINE (PROCHLORPERAZINE MALEATE) [Concomitant]
  5. COD LIVER OIL (COD-LIVER OIL) [Concomitant]
  6. ESTRADIOL (ESTRADIOL) [Concomitant]
  7. FLIXONASE AQUEOUS (FLUTICASONE PROPIONATE) [Concomitant]
  8. LEVOTHYROXINE SODIUM (LEVOTHYROXINE SODIUM) [Concomitant]
  9. SALBUTAMOL (SALBUTAMOL) [Concomitant]
  10. SYMBICORT [Concomitant]

REACTIONS (7)
  - Norovirus test positive [None]
  - Vomiting [None]
  - Gastroenteritis [None]
  - Gastrointestinal disorder [None]
  - Malaise [None]
  - Psychomotor hyperactivity [None]
  - Insomnia [None]
